FAERS Safety Report 10093496 (Version 1)
Quarter: 2014Q2

REPORT INFORMATION
  Report Type: Spontaneous
  Country: US (occurrence: US)
  Receive Date: 20140421
  Receipt Date: 20140421
  Transmission Date: 20141212
  Serious: No
  Sender: FDA-Public Use
  Company Number: US-SA-2014SA018590

PATIENT
  Age: 39 Year
  Sex: Female

DRUGS (1)
  1. ALLEGRA [Suspect]
     Indication: HYPERSENSITIVITY
     Dosage: TAKEN FROM: 2 YEARS AGO
     Route: 048

REACTIONS (4)
  - Dyspepsia [Unknown]
  - Chest discomfort [Unknown]
  - Eructation [Unknown]
  - Adverse event [Unknown]
